FAERS Safety Report 18389529 (Version 1)
Quarter: 2020Q4

REPORT INFORMATION
  Report Type: Other
  Country: CA (occurrence: CA)
  Receive Date: 20201016
  Receipt Date: 20201016
  Transmission Date: 20210114
  Serious: Yes (Other)
  Sender: FDA-Public Use
  Company Number: CA-CELLTRION INC.-2020CA028655

PATIENT

DRUGS (10)
  1. RITUXIMAB (UNKNOWN) [Suspect]
     Active Substance: RITUXIMAB
     Indication: RHEUMATOID ARTHRITIS
     Dosage: 1000 MILLIGRAM, 1 EVERY 2 WEEKS
     Route: 042
  2. METFORMIN [Suspect]
     Active Substance: METFORMIN HYDROCHLORIDE
     Indication: DIABETES MELLITUS
     Route: 065
  3. AMLODIPINE BESILATE [Concomitant]
     Active Substance: AMLODIPINE BESYLATE
  4. ATENOLOL. [Concomitant]
     Active Substance: ATENOLOL
  5. ATORVASTATIN CALCIUM. [Concomitant]
     Active Substance: ATORVASTATIN CALCIUM
  6. METHOTREXATE. [Concomitant]
     Active Substance: METHOTREXATE
  7. SULFASALAZINE. [Concomitant]
     Active Substance: SULFASALAZINE
  8. CANDESARTAN. [Concomitant]
     Active Substance: CANDESARTAN
  9. FLUTAMIDE. [Concomitant]
     Active Substance: FLUTAMIDE
  10. OXYCODONE [Concomitant]
     Active Substance: OXYCODONE

REACTIONS (1)
  - Diabetes mellitus inadequate control [Unknown]
